FAERS Safety Report 20896925 (Version 1)
Quarter: 2022Q2

REPORT INFORMATION
  Report Type: Spontaneous
  Country: US (occurrence: US)
  Receive Date: 20220531
  Receipt Date: 20220531
  Transmission Date: 20220721
  Serious: Yes (Other)
  Sender: FDA-Public Use
  Company Number: US-SA-SAC20220526000526

PATIENT
  Age: 56 Year
  Sex: Male

DRUGS (1)
  1. ZANTAC [Suspect]
     Active Substance: RANITIDINE HYDROCHLORIDE
     Indication: Dyspepsia
     Dosage: 75MG,QW
     Dates: start: 200401, end: 201801

REACTIONS (2)
  - Renal cancer stage IV [Unknown]
  - Bladder cancer [Unknown]

NARRATIVE: CASE EVENT DATE: 20210101
